FAERS Safety Report 16916572 (Version 1)
Quarter: 2019Q4

REPORT INFORMATION
  Report Type: Spontaneous
  Country: DK (occurrence: DK)
  Receive Date: 20191014
  Receipt Date: 20191014
  Transmission Date: 20200122
  Serious: Yes (Life-Threatening, Hospitalization, Other)
  Sender: FDA-Public Use
  Company Number: DK-BAXTER-2019BAX019826

PATIENT
  Age: 70 Year
  Sex: Male

DRUGS (5)
  1. FUROSEMIDE. [Suspect]
     Active Substance: FUROSEMIDE
     Dosage: DOSE INCREASE
     Route: 065
  2. NATRIUMKLORID BAXTER 9 MG/ML [Suspect]
     Active Substance: SODIUM CHLORIDE
     Indication: DIURETIC THERAPY
     Dosage: ISOTONIC
     Route: 065
  3. NATRIUMKLORID BAXTER 9 MG/ML [Suspect]
     Active Substance: SODIUM CHLORIDE
     Dosage: DOSE INCREASE, ISOTONIC
     Route: 065
  4. FUROSEMIDE. [Suspect]
     Active Substance: FUROSEMIDE
     Indication: DIURETIC THERAPY
     Route: 065
  5. HUMAN ALBUMIN [Suspect]
     Active Substance: ALBUMIN HUMAN
     Indication: DIURETIC THERAPY
     Dosage: DOSE INCREASE
     Route: 065

REACTIONS (3)
  - Hepatorenal syndrome [Not Recovered/Not Resolved]
  - Acute kidney injury [Not Recovered/Not Resolved]
  - Overdose [Not Recovered/Not Resolved]
